FAERS Safety Report 25275308 (Version 2)
Quarter: 2025Q3

REPORT INFORMATION
  Report Type: Spontaneous
  Country: MX (occurrence: MX)
  Receive Date: 20250506
  Receipt Date: 20250715
  Transmission Date: 20251020
  Serious: Yes (Other)
  Sender: MERCK SHARP & DOHME LLC
  Company Number: MX-009507513-2282936

PATIENT
  Age: 62 Year
  Sex: Female
  Weight: 60.8 kg

DRUGS (4)
  1. EMEND [Suspect]
     Active Substance: APREPITANT
     Indication: Product used for unknown indication
     Dosage: 150 MG IN 150 ML OF 0.9% SALINE SOLUTION EVERY 21 DAYS
     Route: 042
     Dates: start: 20250429, end: 20250429
  2. Cloropiramina [Concomitant]
     Route: 042
     Dates: start: 20250429, end: 20250429
  3. DEXAMETHASONE [Concomitant]
     Active Substance: DEXAMETHASONE
  4. PALONOSETRON [Concomitant]
     Active Substance: PALONOSETRON

REACTIONS (4)
  - Hypertension [Recovered/Resolved]
  - Skin burning sensation [Recovered/Resolved]
  - Back pain [Recovered/Resolved]
  - Erythema [Recovered/Resolved]

NARRATIVE: CASE EVENT DATE: 20250429
